FAERS Safety Report 12929227 (Version 2)
Quarter: 2017Q1

REPORT INFORMATION
  Report Type: Spontaneous
  Country: US (occurrence: US)
  Receive Date: 20161110
  Receipt Date: 20170103
  Transmission Date: 20170428
  Serious: No
  Sender: FDA-Public Use
  Company Number: US-PFIZER INC-2016520714

PATIENT
  Age: 50 Year
  Sex: Female
  Weight: 94 kg

DRUGS (2)
  1. ADVIL [Suspect]
     Active Substance: IBUPROFEN
     Indication: PAIN
     Dosage: 2 DF, AS NEEDED
     Route: 048
     Dates: start: 1977, end: 20161106
  2. ADVIL [Suspect]
     Active Substance: IBUPROFEN
     Indication: PAIN
     Dosage: 600 MG, AS NEEDED
     Route: 048

REACTIONS (3)
  - Rash [Not Recovered/Not Resolved]
  - Weight decreased [Unknown]
  - Flatulence [Not Recovered/Not Resolved]

NARRATIVE: CASE EVENT DATE: 201607
